FAERS Safety Report 20146478 (Version 4)
Quarter: 2022Q1

REPORT INFORMATION
  Report Type: Spontaneous
  Country: JP (occurrence: JP)
  Receive Date: 20211203
  Receipt Date: 20220330
  Transmission Date: 20220424
  Serious: Yes (Other)
  Sender: FDA-Public Use
  Company Number: JP-BAYER-2021A257152

PATIENT
  Age: 98 Year
  Sex: Female

DRUGS (8)
  1. VERICIGUAT HYDROCHLORIDE [Suspect]
     Active Substance: VERICIGUAT HYDROCHLORIDE
     Indication: Cardiac failure chronic
     Dosage: 2.5MG, ONCE DAILY
     Route: 048
     Dates: start: 20211108, end: 20211119
  2. VERICIGUAT HYDROCHLORIDE [Suspect]
     Active Substance: VERICIGUAT HYDROCHLORIDE
     Dosage: 2.5MG, ONCE DAILY
     Route: 048
     Dates: start: 20211129
  3. EPLERENONE [Concomitant]
     Active Substance: EPLERENONE
     Indication: Cardiac failure chronic
     Dosage: DAILY DOSE: 20 MILLIGRAM
     Route: 048
     Dates: start: 20211029
  4. TOFOGLIFLOZIN [Concomitant]
     Active Substance: TOFOGLIFLOZIN
     Dosage: DAILY DOSE: 20 MILLIGRAM
     Route: 048
     Dates: start: 20211029
  5. LASIX [Concomitant]
     Active Substance: FUROSEMIDE
     Dosage: DAILY DOSE: 20 MILLIGRAM
     Route: 048
     Dates: start: 20211029
  6. MAGNESIUM OXIDE [Concomitant]
     Active Substance: MAGNESIUM OXIDE
     Dosage: 660 MILLIGRAM, QD
     Route: 048
     Dates: start: 20211029
  7. ELOBIXIBAT [Concomitant]
     Active Substance: ELOBIXIBAT
     Dosage: DAILY DOSE: 5 MILLIGRAM
     Route: 048
     Dates: start: 20211029
  8. SODIUM PICOSULFATE [Concomitant]
     Active Substance: SODIUM PICOSULFATE
     Indication: Constipation
     Dosage: UNK
     Dates: start: 20211206

REACTIONS (2)
  - Loss of consciousness [Recovered/Resolved]
  - Hypotension [Not Recovered/Not Resolved]

NARRATIVE: CASE EVENT DATE: 20211101
